FAERS Safety Report 14815955 (Version 1)
Quarter: 2018Q2

REPORT INFORMATION
  Report Type: Spontaneous
  Country: FR (occurrence: FR)
  Receive Date: 20180426
  Receipt Date: 20180426
  Transmission Date: 20180711
  Serious: Yes (Other)
  Sender: FDA-Public Use
  Company Number: FR-PFIZER INC-2018164875

PATIENT
  Age: 65 Year
  Sex: Male
  Weight: 60 kg

DRUGS (7)
  1. ENTRESTO [Suspect]
     Active Substance: SACUBITRIL\VALSARTAN
     Indication: MYOCARDIAL ISCHAEMIA
     Dosage: UNK
     Route: 048
  2. BISOPROLOL [Concomitant]
     Active Substance: BISOPROLOL
     Indication: MYOCARDIAL ISCHAEMIA
     Dosage: UNK
  3. ATORVASTATIN [Concomitant]
     Active Substance: ATORVASTATIN
     Indication: MYOCARDIAL ISCHAEMIA
     Dosage: UNK
  4. COUMADINE [Concomitant]
     Active Substance: WARFARIN SODIUM
     Indication: MYOCARDIAL ISCHAEMIA
     Dosage: UNK
  5. INSPRA [Suspect]
     Active Substance: EPLERENONE
     Indication: MYOCARDIAL ISCHAEMIA
     Dosage: 1 DF AT NOON
     Route: 048
  6. RAMIPRIL. [Concomitant]
     Active Substance: RAMIPRIL
     Indication: MYOCARDIAL ISCHAEMIA
     Dosage: UNK
  7. KARDEGIC [Concomitant]
     Active Substance: ASPIRIN DL-LYSINE
     Indication: MYOCARDIAL ISCHAEMIA
     Dosage: UNK

REACTIONS (2)
  - Hyperkalaemia [Recovering/Resolving]
  - Acute kidney injury [Recovering/Resolving]

NARRATIVE: CASE EVENT DATE: 20170323
